FAERS Safety Report 9268018 (Version 1)
Quarter: 2013Q2

REPORT INFORMATION
  Report Type: Spontaneous
  Country: US (occurrence: US)
  Receive Date: 20130502
  Receipt Date: 20130502
  Transmission Date: 20140414
  Serious: Yes (Other)
  Sender: FDA-Public Use
  Company Number: US-ALEXION-A201201364

PATIENT
  Sex: Male
  Weight: 127 kg

DRUGS (4)
  1. SOLIRIS 300MG [Suspect]
     Indication: PAROXYSMAL NOCTURNAL HAEMOGLOBINURIA
     Dosage: 600 MG, QW
     Route: 042
     Dates: start: 20100922, end: 20101027
  2. SOLIRIS 300MG [Suspect]
     Dosage: 900 MG, Q2W
     Route: 042
     Dates: start: 20101027
  3. IRON [Concomitant]
     Dosage: UNK
     Route: 048
  4. MULTIVITAMIN [Concomitant]
     Dosage: UNK
     Route: 048

REACTIONS (1)
  - Knee arthroplasty [Recovered/Resolved]
